FAERS Safety Report 13417318 (Version 1)
Quarter: 2017Q2

REPORT INFORMATION
  Report Type: Spontaneous
  Country: GB (occurrence: GB)
  Receive Date: 20170407
  Receipt Date: 20170407
  Transmission Date: 20170830
  Serious: Yes (Hospitalization, Other)
  Sender: FDA-Public Use
  Company Number: GB-TELIGENT, INC-IGIL20170134

PATIENT
  Age: 64 Year
  Sex: Male

DRUGS (2)
  1. CEFUROXIME SODIUM. [Suspect]
     Active Substance: CEFUROXIME SODIUM
     Indication: ANTIBIOTIC PROPHYLAXIS
     Dosage: 500 MG
     Route: 042
  2. DIAZEPAM. [Concomitant]
     Active Substance: DIAZEPAM
     Indication: PREMEDICATION
     Dosage: 5 MG
     Route: 048

REACTIONS (25)
  - Bronchospasm [Recovered/Resolved]
  - Discomfort [Recovered/Resolved]
  - Haemodynamic instability [Recovered/Resolved]
  - Acute coronary syndrome [Recovered/Resolved]
  - Atrial fibrillation [Recovered/Resolved]
  - Hypoperfusion [Recovered/Resolved]
  - Distributive shock [Recovered/Resolved]
  - Pruritus generalised [Recovered/Resolved]
  - Periorbital oedema [Recovered/Resolved]
  - Atrioventricular block complete [Recovered/Resolved]
  - ECG signs of myocardial ischaemia [Recovered/Resolved]
  - Arteriospasm coronary [Recovered/Resolved]
  - Hypersensitivity [Recovered/Resolved]
  - Chest pain [Recovered/Resolved]
  - Electrocardiogram ST segment elevation [Recovered/Resolved]
  - Electrocardiogram ST segment depression [Recovered/Resolved]
  - Erythema [Recovered/Resolved]
  - Hypotension [Recovered/Resolved]
  - Cardiogenic shock [Recovered/Resolved]
  - Myocardial stunning [Recovered/Resolved]
  - Kounis syndrome [Recovered/Resolved]
  - Anaphylactic shock [Recovered/Resolved]
  - Metabolic acidosis [Recovered/Resolved]
  - Ventricular hypokinesia [Recovered/Resolved]
  - Sinus arrest [Recovered/Resolved]
